FAERS Safety Report 5833268-5 (Version None)
Quarter: 2008Q3

REPORT INFORMATION
  Report Type: 
  Country: None (occurrence: None)
  Receive Date: 20080801
  Receipt Date: 20080718
  Transmission Date: 20090109
  Serious: Yes (Hospitalization)
  Sender: FDA-Public Use
  Company Number: 15153

PATIENT
  Age: 44 Year
  Sex: Female
  Weight: 88.4514 kg

DRUGS (4)
  1. MORPHINE SULFATE [Suspect]
     Indication: BACK PAIN
     Dosage: 100 MG TID ORALLY
     Route: 048
     Dates: start: 20030101
  2. MORPHINE SULFATE [Suspect]
     Indication: PAIN IN EXTREMITY
     Dosage: 100 MG TID ORALLY
     Route: 048
     Dates: start: 20030101
  3. ELAVIL [Concomitant]
  4. ATENOLOL [Concomitant]

REACTIONS (7)
  - CONVULSION [None]
  - DISORIENTATION [None]
  - GRAND MAL CONVULSION [None]
  - INCONTINENCE [None]
  - PAIN [None]
  - PHARMACEUTICAL PRODUCT COMPLAINT [None]
  - SKIN DISCOLOURATION [None]
